FAERS Safety Report 7208651-6 (Version None)
Quarter: 2011Q1

REPORT INFORMATION
  Report Type: 
  Country: None (occurrence: None)
  Receive Date: 20110104
  Receipt Date: 20101228
  Transmission Date: 20110831
  Serious: Yes (Death, Hospitalization)
  Sender: FDA-Public Use
  Company Number: FR-ROCHE-751265

PATIENT
  Age: 59 Year
  Sex: Male
  Weight: 65 kg

DRUGS (6)
  1. CELESTONE [Concomitant]
     Route: 048
     Dates: start: 20101206
  2. BEVACIZUMAB [Suspect]
     Indication: GLIOBLASTOMA
     Route: 042
     Dates: start: 20100929, end: 20101103
  3. IRINOTECAN [Suspect]
     Indication: GLIOBLASTOMA
     Route: 042
     Dates: start: 20100929, end: 20101103
  4. DOMPERIDONE [Concomitant]
     Indication: NAUSEA
     Route: 048
     Dates: start: 20101007
  5. KEPPRA [Concomitant]
     Indication: EPILEPSY
     Route: 048
     Dates: start: 20100901
  6. PARACETAMOL [Concomitant]
     Route: 048
     Dates: start: 20101007

REACTIONS (1)
  - INTRACRANIAL TUMOUR HAEMORRHAGE [None]
